FAERS Safety Report 8904283 (Version 1)
Quarter: 2012Q4

REPORT INFORMATION
  Report Type: Report from Study
  Country: DE (occurrence: DE)
  Receive Date: 20121112
  Receipt Date: 20121112
  Transmission Date: 20130627
  Serious: Yes (Hospitalization)
  Sender: FDA-Public Use
  Company Number: DE-GLAXOSMITHKLINE-B0634949B

PATIENT
  Sex: Female
  Weight: 68 kg

DRUGS (3)
  1. LAPATINIB [Suspect]
     Indication: BREAST CANCER
     Dosage: 1250MG per day
     Route: 048
     Dates: start: 20100222
  2. MYOCET [Suspect]
     Indication: BREAST CANCER
     Dosage: 105MG Every 3 weeks
     Route: 042
     Dates: start: 20100222
  3. PACLITAXEL [Suspect]
     Indication: BREAST CANCER
     Dosage: 300MG Every 3 weeks
     Route: 042
     Dates: start: 20100222

REACTIONS (1)
  - Neutropenia [Recovered/Resolved]
